FAERS Safety Report 10497088 (Version 1)
Quarter: 2014Q4

REPORT INFORMATION
  Report Type: Spontaneous
  Country: CA (occurrence: CA)
  Receive Date: 20141006
  Receipt Date: 20141006
  Transmission Date: 20150528
  Serious: Yes (Other)
  Sender: FDA-Public Use
  Company Number: CA-009507513-1410CAN001375

PATIENT
  Sex: Male

DRUGS (7)
  1. AVAMYS [Concomitant]
     Active Substance: FLUTICASONE FUROATE
     Dosage: UNK, SPRAY, METERED DOSE
  2. SODIUM CHLORIDE. [Concomitant]
     Active Substance: SODIUM CHLORIDE
     Dosage: UNK
  3. SINGULAIR [Suspect]
     Active Substance: MONTELUKAST SODIUM
     Dosage: 4 MG, 1 EVERY 1 DAY
     Route: 065
  4. PREVACID [Concomitant]
     Active Substance: LANSOPRAZOLE
     Dosage: UNK
  5. ALVESCO [Concomitant]
     Active Substance: CICLESONIDE
     Dosage: UNK, AEROSOL, METERED DOSE
  6. FLOVENT [Concomitant]
     Active Substance: FLUTICASONE PROPIONATE
     Dosage: UNK
  7. ATROVENT [Concomitant]
     Active Substance: IPRATROPIUM BROMIDE
     Dosage: UNK

REACTIONS (3)
  - Sleep disorder [Recovered/Resolved]
  - Nightmare [Recovered/Resolved]
  - Hallucination [Recovered/Resolved]
